FAERS Safety Report 5885576-X (Version None)
Quarter: 2008Q3

REPORT INFORMATION
  Report Type: 
  Country: None (occurrence: None)
  Receive Date: 20080916
  Receipt Date: 20080911
  Transmission Date: 20090109
  Serious: Yes (Hospitalization)
  Sender: FDA-Public Use
  Company Number: US-ROXANE LABORATORIES, INC.-2008-RO-00024RO

PATIENT
  Sex: Male
  Weight: 97 kg

DRUGS (8)
  1. PREDNISONE TAB [Suspect]
     Indication: PROSTATE CANCER METASTATIC
     Dosage: 10MG
     Route: 048
     Dates: start: 20080616
  2. PREDNISONE TAB [Suspect]
     Dates: start: 20080501
  3. ENZASTAURIN [Suspect]
     Indication: PROSTATE CANCER METASTATIC
     Route: 048
     Dates: start: 20080616, end: 20080616
  4. ENZASTAURIN [Suspect]
     Route: 048
     Dates: start: 20080617
  5. DOCETAXEL [Suspect]
     Indication: PROSTATE CANCER METASTATIC
     Route: 042
     Dates: start: 20080616
  6. DILTIAZEM [Concomitant]
  7. PROZAC [Concomitant]
  8. ZOLADEX [Concomitant]
     Dates: start: 20071226

REACTIONS (2)
  - FEBRILE NEUTROPENIA [None]
  - PNEUMONIA [None]
